FAERS Safety Report 7579811-X (Version None)
Quarter: 2011Q2

REPORT INFORMATION
  Report Type: 
  Country: None (occurrence: None)
  Receive Date: 20110629
  Receipt Date: 20110117
  Transmission Date: 20111010
  Serious: No
  Sender: FDA-Public Use
  Company Number: A0906508A

PATIENT
  Age: 26 Year
  Sex: Female

DRUGS (2)
  1. FORTAZ [Suspect]
     Indication: CYSTIC FIBROSIS
     Route: 042
  2. TOBRAMYCIN [Concomitant]

REACTIONS (3)
  - STOMATITIS [None]
  - OEDEMA MOUTH [None]
  - ORAL DISCOMFORT [None]
